FAERS Safety Report 7998947-2 (Version None)
Quarter: 2011Q4

REPORT INFORMATION
  Report Type: 
  Country: None (occurrence: None)
  Receive Date: 20111221
  Receipt Date: 20111214
  Transmission Date: 20120403
  Serious: Yes (Hospitalization)
  Sender: FDA-Public Use
  Company Number: 2011SP004230

PATIENT
  Sex: Female

DRUGS (4)
  1. DOXEPIN [Concomitant]
     Indication: PRODUCT USED FOR UNKNOWN INDICATION
  2. TEGRETOL [Concomitant]
     Indication: PRODUCT USED FOR UNKNOWN INDICATION
  3. LATUDA [Suspect]
     Indication: DELUSION
     Route: 048
     Dates: start: 20110101, end: 20110101
  4. LATUDA [Suspect]
     Route: 048
     Dates: start: 20110101, end: 20110101

REACTIONS (1)
  - CATATONIA [None]
